FAERS Safety Report 14673095 (Version 1)
Quarter: 2018Q1

REPORT INFORMATION
  Report Type: Report from Study
  Country: ZA (occurrence: ZA)
  Receive Date: 20180323
  Receipt Date: 20180323
  Transmission Date: 20180509
  Serious: Yes (Other)
  Sender: FDA-Public Use
  Company Number: ZA-HETERO CORPORATE-HET2018ZA00216

PATIENT
  Age: 35 Year
  Sex: Female

DRUGS (1)
  1. EFAVIRENZ. [Suspect]
     Active Substance: EFAVIRENZ
     Indication: HIV INFECTION
     Dosage: 600 MG, QD
     Route: 048
     Dates: start: 20180214

REACTIONS (5)
  - Platelet count decreased [Unknown]
  - Foetal death [Unknown]
  - Haemoglobin decreased [Unknown]
  - Vitamin B12 deficiency [Unknown]
  - Exposure during pregnancy [Unknown]
